FAERS Safety Report 4888476-7 (Version None)
Quarter: 2005Q4

REPORT INFORMATION
  Report Type: 
  Country: None (occurrence: None)
  Receive Date: 20051221
  Receipt Date: 20051003
  Transmission Date: 20060501
  Serious: No
  Sender: FDA-Public Use
  Company Number: US-YAMANOUCHI-YPA20050518

PATIENT
  Age: 83 Year
  Sex: Male

DRUGS (9)
  1. VESICARE [Suspect]
     Indication: POLLAKIURIA
     Dosage: 5 MG PO
     Route: 048
     Dates: start: 20050811
  2. GLUCOSAMIN CHONDROITIN [Concomitant]
  3. CENTRUM SILVER [Concomitant]
  4. GEMFIBROZIL [Concomitant]
  5. ATENOLOL [Concomitant]
  6. ASPIRIN [Concomitant]
  7. OMEPRAZOLE [Concomitant]
  8. LISINOPRIL [Concomitant]
  9. TERAZOSIN [Concomitant]

REACTIONS (1)
  - DRUG INEFFECTIVE [None]
